FAERS Safety Report 11746216 (Version 4)
Quarter: 2016Q3

REPORT INFORMATION
  Report Type: Report from Study
  Country: ZA (occurrence: ZA)
  Receive Date: 20151117
  Receipt Date: 20160816
  Transmission Date: 20161109
  Serious: Yes (Hospitalization)
  Sender: FDA-Public Use
  Company Number: PHHO2015ZA018880

PATIENT
  Age: 59 Year
  Sex: Female
  Weight: 85 kg

DRUGS (13)
  1. ENALAPRIL [Concomitant]
     Active Substance: ENALAPRIL
     Indication: PRODUCT USED FOR UNKNOWN INDICATION
     Dosage: 10 MG, BID
     Route: 048
  2. FUROSEMIDE. [Concomitant]
     Active Substance: FUROSEMIDE
     Indication: PRODUCT USED FOR UNKNOWN INDICATION
     Dosage: 80 MG, BID
     Route: 048
  3. AMLODIPINE [Suspect]
     Active Substance: AMLODIPINE BESYLATE
     Indication: PRODUCT USED FOR UNKNOWN INDICATION
     Dosage: 5 MG, QD
     Route: 048
     Dates: start: 20151101
  4. CLEXANE [Concomitant]
     Active Substance: ENOXAPARIN SODIUM
     Dosage: 20 MG, UNK
     Route: 058
     Dates: start: 20151102
  5. METFORMIN [Suspect]
     Active Substance: METFORMIN HYDROCHLORIDE
     Indication: DIABETES MELLITUS
     Dosage: 850 MG, BID
     Route: 048
     Dates: start: 20150818
  6. LASIX [Suspect]
     Active Substance: FUROSEMIDE
     Indication: PRODUCT USED FOR UNKNOWN INDICATION
     Route: 065
     Dates: start: 20151101
  7. ENALAPRIL [Suspect]
     Active Substance: ENALAPRIL
     Indication: PRODUCT USED FOR UNKNOWN INDICATION
     Dosage: 10 MG, BID
     Route: 048
     Dates: start: 20151101
  8. BLINDED RLX030 [Suspect]
     Active Substance: SERELAXIN
     Indication: CARDIAC FAILURE ACUTE
     Dosage: CODE NOT BROKEN
     Route: 042
     Dates: start: 20151029, end: 20151031
  9. INSULIN [Concomitant]
     Active Substance: INSULIN NOS
     Indication: DIABETES MELLITUS
     Dosage: 4 U, UNK
     Route: 065
     Dates: start: 20151103
  10. CARLOC [Concomitant]
     Active Substance: CARVEDILOL
     Indication: PRODUCT USED FOR UNKNOWN INDICATION
     Dosage: 6.25 MG, BID
     Route: 048
  11. BLINDED NO TREATMENT RECEIVED [Suspect]
     Active Substance: INVESTIGATIONAL PRODUCT
     Indication: CARDIAC FAILURE ACUTE
     Dosage: CODE NOT BROKEN
     Route: 042
     Dates: start: 20151029, end: 20151031
  12. BLINDED PLACEBO [Suspect]
     Active Substance: INVESTIGATIONAL PRODUCT
     Indication: CARDIAC FAILURE ACUTE
     Dosage: CODE NOT BROKEN
     Route: 042
     Dates: start: 20151029, end: 20151031
  13. CLEXANE [Concomitant]
     Active Substance: ENOXAPARIN SODIUM
     Indication: PROPHYLAXIS
     Dosage: 40 MG, QD
     Route: 058
     Dates: start: 20151029

REACTIONS (4)
  - Liver injury [Recovered/Resolved with Sequelae]
  - Vomiting [Recovered/Resolved]
  - Hypotension [Recovered/Resolved]
  - Acute kidney injury [Recovering/Resolving]

NARRATIVE: CASE EVENT DATE: 20151102
